FAERS Safety Report 5117559-1 (Version None)
Quarter: 2006Q3

REPORT INFORMATION
  Report Type: 
  Country: None (occurrence: None)
  Receive Date: 20060926
  Receipt Date: 20060908
  Transmission Date: 20061208
  Serious: Yes (Hospitalization, Other)
  Sender: FDA-Public Use
  Company Number: US200607000685

PATIENT
  Age: 74 Year
  Sex: Female

DRUGS (2)
  1. HUMULIN N [Suspect]
     Indication: DIABETES MELLITUS
     Dosage: 50 U, AT NIGHT
  2. HUMULIN R [Suspect]
     Indication: DIABETES MELLITUS
     Dosage: SEE IMATE

REACTIONS (5)
  - CORONARY ARTERY DISEASE [None]
  - FALL [None]
  - HYPOKINESIA [None]
  - SPINAL COMPRESSION FRACTURE [None]
  - VISION BLURRED [None]
